FAERS Safety Report 8286366-3 (Version None)
Quarter: 2012Q2

REPORT INFORMATION
  Report Type: 
  Country: None (occurrence: None)
  Receive Date: 20120411
  Receipt Date: 20120411
  Transmission Date: 20120825
  Serious: Yes (Other)
  Sender: FDA-Public Use
  Company Number: None

PATIENT
  Age: 46 Year
  Sex: Female
  Weight: 64.8644 kg

DRUGS (2)
  1. NUCYNTA [Suspect]
     Indication: PAIN
     Dosage: 1-2 TABETS 4 TO 6 HOURS WHEN NEEDED MOUTH
     Route: 048
     Dates: start: 20120229, end: 20120311
  2. NUCYNTA [Suspect]
     Indication: SURGERY
     Dosage: 1-2 TABETS 4 TO 6 HOURS WHEN NEEDED MOUTH
     Route: 048
     Dates: start: 20120229, end: 20120311

REACTIONS (5)
  - NAUSEA [None]
  - HAEMORRHAGE [None]
  - PRURITUS [None]
  - ABDOMINAL PAIN [None]
  - MECHANICAL URTICARIA [None]
